FAERS Safety Report 7761919-7 (Version None)
Quarter: 2011Q3

REPORT INFORMATION
  Report Type: 
  Country: None (occurrence: None)
  Receive Date: 20110920
  Receipt Date: 20110912
  Transmission Date: 20111222
  Serious: Yes (Hospitalization, Other)
  Sender: FDA-Public Use
  Company Number: ES-SANOFI-AVENTIS-2011SA005017

PATIENT
  Age: 74 Year
  Sex: Male
  Weight: 82 kg

DRUGS (11)
  1. RANITIDINE [Concomitant]
  2. HYDROCHLOROTHIAZIDE [Concomitant]
     Dates: start: 20100601
  3. FUROSEMIDE [Concomitant]
  4. AMIODARONE HCL [Concomitant]
  5. ATORVASTATIN [Concomitant]
  6. SPIRONOLACTONE [Concomitant]
     Dates: start: 20100601
  7. MULTAQ [Suspect]
     Indication: ATRIAL FIBRILLATION
     Route: 048
     Dates: start: 20101005, end: 20110120
  8. NEBIVOLOL HCL [Concomitant]
     Indication: ISCHAEMIC CARDIOMYOPATHY
     Dates: start: 20080101
  9. SINTROM [Concomitant]
     Indication: ATRIAL FIBRILLATION
     Dates: start: 20100601
  10. ALLOPURINOL [Concomitant]
  11. HEMOVAS [Concomitant]

REACTIONS (6)
  - HEPATITIS [None]
  - HEPATOCELLULAR INJURY [None]
  - NAUSEA [None]
  - DISCOMFORT [None]
  - ASTHENIA [None]
  - BLOOD CREATININE INCREASED [None]
